FAERS Safety Report 22122645 (Version 1)
Quarter: 2023Q1

REPORT INFORMATION
  Report Type: Spontaneous
  Country: CH (occurrence: CH)
  Receive Date: 20230321
  Receipt Date: 20230321
  Transmission Date: 20230417
  Serious: Yes (Congenital Anomaly)
  Sender: FDA-Public Use
  Company Number: CH-002147023-NVSC2023CH058585

PATIENT
  Sex: Male

DRUGS (1)
  1. ERENUMAB [Suspect]
     Active Substance: ERENUMAB
     Indication: Exposure via breast milk
     Dosage: UNK
     Route: 063

REACTIONS (3)
  - Thyroglossal cyst [Unknown]
  - Spina bifida [Unknown]
  - Exposure via breast milk [Unknown]
